FAERS Safety Report 7822259-0 (Version None)
Quarter: 2011Q4

REPORT INFORMATION
  Report Type: 
  Country: None (occurrence: None)
  Receive Date: 20111018
  Receipt Date: 20110429
  Transmission Date: 20120403
  Serious: No
  Sender: FDA-Public Use
  Company Number: US-ASTRAZENECA-2011SE24931

PATIENT
  Sex: Male

DRUGS (2)
  1. AUGMENTIN '125' [Interacting]
     Route: 065
  2. SYMBICORT [Suspect]
     Indication: ASTHMA
     Route: 055

REACTIONS (2)
  - DRUG INTERACTION [None]
  - RASH [None]
